FAERS Safety Report 9345026 (Version 1)
Quarter: 2013Q2

REPORT INFORMATION
  Report Type: Spontaneous
  Country: US (occurrence: US)
  Receive Date: 20130612
  Receipt Date: 20130612
  Transmission Date: 20140414
  Serious: Yes (Hospitalization)
  Sender: FDA-Public Use
  Company Number: US-GILEAD-2013-0072490

PATIENT
  Age: 41 Year
  Sex: Female

DRUGS (3)
  1. LETAIRIS [Suspect]
     Indication: PULMONARY HYPERTENSION
     Dosage: 5 MG, QD
  2. LETAIRIS [Suspect]
     Indication: SARCOIDOSIS
  3. LETAIRIS [Suspect]
     Indication: COR PULMONALE

REACTIONS (2)
  - Unevaluable event [Recovered/Resolved]
  - Dyspnoea [Recovered/Resolved]
